FAERS Safety Report 13179182 (Version 1)
Quarter: 2017Q1

REPORT INFORMATION
  Report Type: Spontaneous
  Country: US (occurrence: US)
  Receive Date: 20170201
  Receipt Date: 20170201
  Transmission Date: 20170428
  Serious: No
  Sender: FDA-Public Use
  Company Number: None

PATIENT
  Age: 61 Year
  Sex: Female
  Weight: 110.25 kg

DRUGS (1)
  1. STELARA [Suspect]
     Active Substance: USTEKINUMAB
     Indication: RHEUMATOID ARTHRITIS
     Dosage: ?          OTHER FREQUENCY:EVERY12 WEEKS;?
     Route: 058
     Dates: start: 20160228, end: 20170131

REACTIONS (3)
  - Nausea [None]
  - Diarrhoea [None]
  - Chest discomfort [None]

NARRATIVE: CASE EVENT DATE: 20170201
